FAERS Safety Report 19147447 (Version 1)
Quarter: 2021Q2

REPORT INFORMATION
  Report Type: Spontaneous
  Country: FR (occurrence: FR)
  Receive Date: 20210416
  Receipt Date: 20210416
  Transmission Date: 20210717
  Serious: Yes (Hospitalization)
  Sender: FDA-Public Use
  Company Number: FR-MYLANLABS-2021M1022102

PATIENT
  Age: 91 Year
  Sex: Female
  Weight: 53 kg

DRUGS (2)
  1. CLINDAMYCINE MYLAN 300 MG, CAPSULES [Suspect]
     Active Substance: CLINDAMYCIN
     Indication: OSTEITIS
     Dosage: 600 MILLIGRAM, Q6H
     Route: 048
     Dates: start: 20201105, end: 20201116
  2. CEFAZOLINE                         /00288501/ [Suspect]
     Active Substance: CEFAZOLIN
     Indication: OSTEITIS
     Dosage: 1 GRAM, QD
     Route: 042
     Dates: start: 20201105, end: 20201116

REACTIONS (3)
  - Nausea [Recovered/Resolved]
  - Gastrooesophageal reflux disease [Recovered/Resolved]
  - Vomiting [Recovered/Resolved]

NARRATIVE: CASE EVENT DATE: 20201105
